FAERS Safety Report 7288572-3 (Version None)
Quarter: 2011Q1

REPORT INFORMATION
  Report Type: 
  Country: None (occurrence: None)
  Receive Date: 20110211
  Receipt Date: 20110201
  Transmission Date: 20110831
  Serious: Yes (Hospitalization)
  Sender: FDA-Public Use
  Company Number: NL-JNJFOC-20090202999

PATIENT
  Sex: Female

DRUGS (25)
  1. REMICADE [Suspect]
     Route: 042
  2. REMICADE [Suspect]
     Route: 042
  3. REMICADE [Suspect]
     Route: 042
  4. REMICADE [Suspect]
     Route: 042
  5. COZAAR [Concomitant]
     Indication: HYPERTENSION
  6. REMICADE [Suspect]
     Indication: CROHN'S DISEASE
     Route: 042
  7. REMICADE [Suspect]
     Route: 042
  8. REMICADE [Suspect]
     Route: 042
  9. REMICADE [Suspect]
     Route: 042
  10. REMICADE [Suspect]
     Route: 042
  11. REMICADE [Suspect]
     Route: 042
  12. REMICADE [Suspect]
     Route: 042
  13. QUESTRAN [Concomitant]
  14. ACTONEL [Concomitant]
     Indication: OSTEOPOROSIS PROPHYLAXIS
  15. BISOPROLOL [Concomitant]
     Indication: HYPERTENSION
  16. REMICADE [Suspect]
     Route: 042
  17. NEXIUM [Concomitant]
     Indication: HYPERCHLORHYDRIA
  18. HYDROCHLOROTHIAZDE TAB [Concomitant]
     Indication: HYPERTENSION
  19. VITAMIN B-12 [Concomitant]
  20. REMICADE [Suspect]
     Route: 042
  21. REMICADE [Suspect]
     Route: 042
  22. MESALAMINE [Concomitant]
     Indication: CROHN'S DISEASE
  23. PREDNISONE [Concomitant]
     Indication: CROHN'S DISEASE
  24. REMICADE [Suspect]
     Route: 042
  25. OXAZEPAM [Concomitant]

REACTIONS (1)
  - BREAST CANCER IN SITU [None]
